FAERS Safety Report 10548000 (Version 2)
Quarter: 2015Q1

REPORT INFORMATION
  Report Type: Spontaneous
  Country: US (occurrence: US)
  Receive Date: 20141028
  Receipt Date: 20150203
  Transmission Date: 20150720
  Serious: Yes (Other)
  Sender: FDA-Public Use
  Company Number: US-PFIZER INC-2014293285

PATIENT
  Age: 66 Year
  Sex: Female
  Weight: 68.4 kg

DRUGS (1)
  1. VFEND [Suspect]
     Active Substance: VORICONAZOLE
     Indication: COCCIDIOIDOMYCOSIS
     Dosage: 200 MG, 2X/DAY
     Dates: start: 201008, end: 20110630

REACTIONS (9)
  - Myocardial infarction [Unknown]
  - Peripheral swelling [Recovering/Resolving]
  - Photosensitivity reaction [Recovering/Resolving]
  - Fatigue [Unknown]
  - Drug hypersensitivity [Unknown]
  - Dyspnoea [Unknown]
  - Asthenia [Unknown]
  - Cardiovascular disorder [Unknown]
  - Pain in extremity [Unknown]

NARRATIVE: CASE EVENT DATE: 201008
